FAERS Safety Report 5603489-5 (Version None)
Quarter: 2008Q1

REPORT INFORMATION
  Report Type: 
  Country: None (occurrence: None)
  Receive Date: 20080122
  Receipt Date: 20080114
  Transmission Date: 20080703
  Serious: Yes (Hospitalization)
  Sender: FDA-Public Use
  Company Number: 2007RL000515

PATIENT
  Age: 49 Year
  Sex: Female
  Weight: 84.7773 kg

DRUGS (16)
  1. LOVAZA [Suspect]
     Indication: BLOOD TRIGLYCERIDES INCREASED
     Dosage: 4 GM; QD; PO
     Route: 048
     Dates: start: 20070830, end: 20071030
  2. BYETTA [Suspect]
     Indication: DIABETES MELLITUS
     Dosage: 5 MG; BID
     Dates: start: 20070830
  3. CYMBALTA [Concomitant]
  4. LISINOPRIL [Concomitant]
  5. ATENOLOL [Concomitant]
  6. ESTRADIOL [Concomitant]
  7. AMITRIPTYLINE HCL [Concomitant]
  8. PREVACID [Concomitant]
  9. LOPID [Concomitant]
  10. ZOCOR [Concomitant]
  11. LASIX [Concomitant]
  12. NITROGLYCERIN [Concomitant]
  13. ACTOS [Concomitant]
  14. METFORMIN HCL [Concomitant]
  15. GLIPIZIDE [Concomitant]
  16. ASPIRIN [Concomitant]

REACTIONS (2)
  - BLOOD TRIGLYCERIDES INCREASED [None]
  - CHOLELITHIASIS [None]
